FAERS Safety Report 8666489 (Version 2)
Quarter: 2012Q4

REPORT INFORMATION
  Report Type: Report from Study
  Country: ZA (occurrence: ZA)
  Receive Date: 20120716
  Receipt Date: 20121009
  Transmission Date: 20130627
  Serious: Yes (Hospitalization)
  Sender: FDA-Public Use
  Company Number: ZA-ROCHE-1083936

PATIENT
  Age: 51 Year
  Sex: Male
  Weight: 81.7 kg

DRUGS (6)
  1. AVASTIN [Suspect]
     Indication: METASTATIC RENAL CELL CARCINOMA
     Route: 050
     Dates: start: 20090518, end: 20110602
  2. INTERFERON ALFA-2A [Suspect]
     Indication: METASTATIC RENAL CELL CARCINOMA
     Dosage: LAST DOSE PRIOR TO SAE:29/FEB/2012
     Route: 050
     Dates: start: 20090518, end: 20120130
  3. HCTZ [Concomitant]
     Route: 065
     Dates: end: 20120130
  4. LEVITRA [Concomitant]
     Route: 065
     Dates: start: 20110617, end: 20120130
  5. LACTULOSE [Concomitant]
     Dosage: Brand name: Lacson
     Route: 065
     Dates: start: 20090505
  6. COVERSYL [Concomitant]

REACTIONS (6)
  - Renal impairment [Recovering/Resolving]
  - Enteritis [Recovered/Resolved]
  - Blood urea increased [None]
  - Blood creatinine increased [None]
  - Enteritis infectious [None]
  - Dehydration [None]
